FAERS Safety Report 10154165 (Version 1)
Quarter: 2014Q2

REPORT INFORMATION
  Report Type: Spontaneous
  Country: DE (occurrence: None)
  Receive Date: 20140502
  Receipt Date: 20140502
  Transmission Date: 20141212
  Serious: Yes (Other)
  Sender: FDA-Public Use
  Company Number: INT_00374_2014

PATIENT
  Age: 49 Year
  Sex: Male

DRUGS (3)
  1. CISPLATIN [Suspect]
     Indication: SEMINOMA
     Dosage: (DF  [3 CYCLES OF PEB REGIMEN])
  2. ETOPOSIDE [Concomitant]
  3. BLEOMYCIN [Concomitant]

REACTIONS (1)
  - Aortic thrombosis [None]
